FAERS Safety Report 13101343 (Version 1)
Quarter: 2017Q1

REPORT INFORMATION
  Report Type: Spontaneous
  Country: US (occurrence: US)
  Receive Date: 20170110
  Receipt Date: 20170110
  Transmission Date: 20170428
  Serious: Yes (Death, Hospitalization)
  Sender: FDA-Public Use
  Company Number: US-DRREDDYS-USA/USA/16/0085998

PATIENT
  Age: 51 Year
  Sex: Male

DRUGS (8)
  1. BUSULFAN. [Suspect]
     Active Substance: BUSULFAN
     Indication: PRODUCT USED FOR UNKNOWN INDICATION
     Route: 065
  2. VALACYCLOVIR [Suspect]
     Active Substance: VALACYCLOVIR HYDROCHLORIDE
     Indication: PROPHYLAXIS
     Route: 048
  3. POSACONAZOLE [Suspect]
     Active Substance: POSACONAZOLE
     Indication: PROPHYLAXIS
     Route: 065
  4. ANTI-THYMOCYTE GLOBULIN (RABBIT) NOS [Suspect]
     Active Substance: LAPINE T-LYMPHOCYTE IMMUNE GLOBULIN
     Indication: PRODUCT USED FOR UNKNOWN INDICATION
     Route: 065
  5. CEFPODOXIME [Suspect]
     Active Substance: CEFPODOXIME
     Indication: PROPHYLAXIS
     Route: 065
  6. TRIMETHOPRIM-SULFAMETHOXAZOLE [Suspect]
     Active Substance: SULFAMETHOXAZOLE\TRIMETHOPRIM
     Indication: PROPHYLAXIS
     Route: 065
  7. VALACYCLOVIR [Suspect]
     Active Substance: VALACYCLOVIR HYDROCHLORIDE
     Route: 048
  8. CLOFARABINE [Suspect]
     Active Substance: CLOFARABINE
     Indication: PRODUCT USED FOR UNKNOWN INDICATION
     Route: 065

REACTIONS (6)
  - Gastrointestinal haemorrhage [Fatal]
  - Graft versus host disease [Fatal]
  - Mental status changes [Fatal]
  - Anal ulcer [Fatal]
  - Herpes simplex [Fatal]
  - Hepatic failure [Fatal]
